FAERS Safety Report 5880279-X (Version None)
Quarter: 2008Q3

REPORT INFORMATION
  Report Type: 
  Country: None (occurrence: None)
  Receive Date: 20080912
  Receipt Date: 20080908
  Transmission Date: 20090109
  Serious: Yes (Life-Threatening, Hospitalization)
  Sender: FDA-Public Use
  Company Number: PHEH2008US07483

PATIENT
  Sex: Male
  Weight: 82.086 kg

DRUGS (6)
  1. EXJADE [Suspect]
     Indication: IRON OVERLOAD
     Dosage: 1625 MG, QD
     Route: 048
     Dates: start: 20080701, end: 20080801
  2. TYLENOL (CAPLET) [Suspect]
     Indication: PAIN
     Dosage: 650 Q 6 HR PRN
     Route: 048
  3. VICODIN [Suspect]
     Indication: PAIN
     Dosage: Q 6 HR PRN
     Route: 048
  4. OXYCODONE HCL [Suspect]
     Indication: PAIN
     Dosage: 5 Q 6 HR PRN
     Route: 048
  5. NEXIUM [Concomitant]
     Indication: GASTROOESOPHAGEAL REFLUX DISEASE
     Dosage: 40 Q 24 HR
     Route: 048
  6. HYDROCHLOROTHIAZIDE [Concomitant]
     Indication: HYPERTENSION
     Dosage: 125 MG Q 24 HR
     Route: 048

REACTIONS (8)
  - ALANINE AMINOTRANSFERASE INCREASED [None]
  - ASPARTATE AMINOTRANSFERASE INCREASED [None]
  - BLOOD ALKALINE PHOSPHATASE INCREASED [None]
  - BLOOD BILIRUBIN INCREASED [None]
  - HEPATIC ENZYME INCREASED [None]
  - JAUNDICE [None]
  - PYREXIA [None]
  - URINARY TRACT INFECTION [None]
